FAERS Safety Report 8380310-6 (Version None)
Quarter: 2012Q2

REPORT INFORMATION
  Report Type: 
  Country: None (occurrence: None)
  Receive Date: 20120523
  Receipt Date: 20120518
  Transmission Date: 20120825
  Serious: Yes (Other)
  Sender: FDA-Public Use
  Company Number: US-PFIZER INC-2012121483

PATIENT
  Sex: Female
  Weight: 73.469 kg

DRUGS (6)
  1. IBUPROFEN (ADVIL) [Suspect]
     Indication: PAIN
     Dosage: UNK
  2. CHANTIX [Suspect]
     Indication: SMOKING CESSATION THERAPY
     Dosage: 1 MG, 2X/DAY
     Route: 048
  3. NAPROXEN (ALEVE) [Suspect]
     Indication: PAIN
     Dosage: UNK
  4. PERCOCET [Suspect]
     Indication: PAIN
     Dosage: UNK
  5. DIAZEPAM [Concomitant]
     Indication: PAIN
     Dosage: UNKNOWN, AS NEEDED EITHER DAILY OR TWO TIMES IN A DAY
  6. TYLENOL [Suspect]
     Indication: PAIN
     Dosage: UNK

REACTIONS (9)
  - VITAMIN D DECREASED [None]
  - FEELING JITTERY [None]
  - ANXIETY [None]
  - HYPERTENSION [None]
  - SYSTEMIC LUPUS ERYTHEMATOSUS [None]
  - HEPATIC PAIN [None]
  - BLOOD CHOLESTEROL INCREASED [None]
  - WEIGHT INCREASED [None]
  - LIVER DISORDER [None]
